FAERS Safety Report 4576260-3 (Version None)
Quarter: 2005Q1

REPORT INFORMATION
  Report Type: 
  Country: None (occurrence: None)
  Receive Date: 20050119
  Receipt Date: 20041112
  Transmission Date: 20050727
  Serious: Yes (Hospitalization)
  Sender: FDA-Public Use
  Company Number: A03200403854

PATIENT
  Age: 63 Year
  Sex: Male

DRUGS (5)
  1. PLAVIX [Suspect]
     Indication: DEEP VEIN THROMBOSIS
     Dosage: 75 MG QD - ORAL
     Route: 048
     Dates: start: 20011110, end: 20030328
  2. SODIUM CHLORIDE [Concomitant]
  3. GLUCOSAMINE [Concomitant]
  4. TERAZOSIN HYDROCHLORIDE [Concomitant]
  5. GABAPENTIN [Concomitant]

REACTIONS (1)
  - EPISTAXIS [None]
